FAERS Safety Report 6068935-4 (Version None)
Quarter: 2009Q1

REPORT INFORMATION
  Report Type: 
  Country: None (occurrence: None)
  Receive Date: 20090206
  Receipt Date: 20090203
  Transmission Date: 20090719
  Serious: Yes (Hospitalization)
  Sender: FDA-Public Use
  Company Number: US-ASTRAZENECA-2008UW15804

PATIENT
  Sex: Male
  Weight: 104.3 kg

DRUGS (9)
  1. CRESTOR [Suspect]
     Indication: BLOOD CHOLESTEROL INCREASED
     Dosage: 10 MG
     Route: 048
     Dates: start: 20080701, end: 20081201
  2. ANTIVERT [Concomitant]
  3. PRINIVIL [Concomitant]
  4. LOPRESSOR [Concomitant]
  5. IMDUR [Concomitant]
  6. PLAVIX [Concomitant]
  7. ASPIRIN [Concomitant]
     Dosage: 81 MG
  8. POTASSIUM CHLORIDE [Concomitant]
  9. LASIX [Concomitant]
     Dosage: 40 MG

REACTIONS (8)
  - BALANCE DISORDER [None]
  - BLOOD PRESSURE ABNORMAL [None]
  - BLOOD PRESSURE INCREASED [None]
  - DIZZINESS [None]
  - FATIGUE [None]
  - GAIT DISTURBANCE [None]
  - NERVOUSNESS [None]
  - PAIN IN EXTREMITY [None]
